FAERS Safety Report 5408973-5 (Version None)
Quarter: 2007Q3

REPORT INFORMATION
  Report Type: 
  Country: None (occurrence: None)
  Receive Date: 20070806
  Receipt Date: 20070720
  Transmission Date: 20080115
  Serious: Yes (Hospitalization)
  Sender: FDA-Public Use
  Company Number: 016517

PATIENT
  Age: 43 Year
  Sex: Female

DRUGS (2)
  1. METHOTREXATE [Suspect]
     Indication: RHEUMATOID ARTHRITIS
     Dosage: 15 MG EVERY WEEK
  2. PREDNISONE TAB [Concomitant]

REACTIONS (5)
  - DISSEMINATED INTRAVASCULAR COAGULATION [None]
  - FELTY'S SYNDROME [None]
  - HISTOPLASMOSIS DISSEMINATED [None]
  - PANCYTOPENIA [None]
  - SPLENOMEGALY [None]
